FAERS Safety Report 5979077-8 (Version None)
Quarter: 2008Q4

REPORT INFORMATION
  Report Type: 
  Country: None (occurrence: None)
  Receive Date: 20081204
  Receipt Date: 20080715
  Transmission Date: 20090506
  Serious: No
  Sender: FDA-Public Use
  Company Number: US-ABBOTT-08P-163-0463589-00

PATIENT
  Sex: Female
  Weight: 55.842 kg

DRUGS (4)
  1. TRICOR [Suspect]
     Indication: BLOOD CHOLESTEROL INCREASED
     Route: 048
     Dates: start: 20080501, end: 20080628
  2. TRICOR [Suspect]
     Dosage: ^CUT THE PILLS IN HALF AFTER 4 WKS^
     Route: 048
     Dates: end: 20080628
  3. GENERAL VITAMINS [Concomitant]
     Indication: DRUG USE FOR UNKNOWN INDICATION
     Route: 048
  4. ANTIOXIDANTS (ORGANIC BASED) [Concomitant]
     Indication: DRUG USE FOR UNKNOWN INDICATION
     Route: 048

REACTIONS (6)
  - BLISTER [None]
  - FACIAL PAIN [None]
  - HEADACHE [None]
  - HERPES ZOSTER [None]
  - OROPHARYNGEAL BLISTERING [None]
  - PAIN [None]
